FAERS Safety Report 4783368-6 (Version None)
Quarter: 2005Q3

REPORT INFORMATION
  Report Type: 
  Country: None (occurrence: None)
  Receive Date: 20050928
  Receipt Date: 20050912
  Transmission Date: 20060218
  Serious: Yes (Hospitalization)
  Sender: FDA-Public Use
  Company Number: DSA_70701_2005

PATIENT
  Age: 61 Year
  Sex: Female
  Weight: 61.2356 kg

DRUGS (4)
  1. CLONIDINE [Suspect]
     Dosage: 30 MCG QDAY IT
     Route: 037
  2. PRIALT [Suspect]
     Indication: COCCYDYNIA
     Dosage: 0.4 MCG/HR QDAY IT
     Route: 037
     Dates: start: 20050809
  3. PRIALT [Suspect]
     Indication: JOINT ARTHROPLASTY
     Dosage: 0.4 MCG/HR QDAY IT
     Route: 037
     Dates: start: 20050809
  4. DILAUDID [Concomitant]

REACTIONS (9)
  - DEHYDRATION [None]
  - DIZZINESS [None]
  - FALL [None]
  - HYPERSOMNIA [None]
  - HYPOTENSION [None]
  - HYPOVOLAEMIA [None]
  - LOSS OF CONSCIOUSNESS [None]
  - PAIN [None]
  - URINARY TRACT INFECTION [None]
